FAERS Safety Report 12384497 (Version 1)
Quarter: 2016Q2

REPORT INFORMATION
  Report Type: Spontaneous
  Country: US (occurrence: US)
  Receive Date: 20160519
  Receipt Date: 20160519
  Transmission Date: 20160815
  Serious: No
  Sender: FDA-Public Use
  Company Number: US-TEVA-655908USA

PATIENT
  Sex: Female
  Weight: 72.64 kg

DRUGS (2)
  1. NYSTATIN. [Suspect]
     Active Substance: NYSTATIN
     Indication: ABDOMINAL DISTENSION
     Dosage: 500,000 UNITS
     Route: 065
     Dates: start: 20160328, end: 20160415
  2. NYSTATIN. [Suspect]
     Active Substance: NYSTATIN
     Indication: DYSPEPSIA

REACTIONS (3)
  - Abdominal pain upper [Unknown]
  - Drug dose omission [Unknown]
  - Product use issue [Unknown]
